FAERS Safety Report 6225171-6 (Version None)
Quarter: 2009Q2

REPORT INFORMATION
  Report Type: 
  Country: None (occurrence: None)
  Receive Date: 20090612
  Receipt Date: 20090408
  Transmission Date: 20091009
  Serious: No
  Sender: FDA-Public Use
  Company Number: US-ABBOTT-09P-163-0567370-00

PATIENT
  Sex: Male
  Weight: 102.15 kg

DRUGS (9)
  1. HUMIRA [Suspect]
     Indication: RHEUMATOID ARTHRITIS
     Route: 058
     Dates: start: 20050102
  2. HUMIRA [Suspect]
     Route: 058
     Dates: end: 20070101
  3. HUMIRA [Suspect]
     Indication: RHEUMATOID ARTHRITIS
     Dates: end: 20070101
  4. IMURAN [Concomitant]
     Indication: RHEUMATOID ARTHRITIS
     Dates: start: 20070101
  5. FISH OIL [Concomitant]
     Indication: ROUTINE HEALTH MAINTENANCE
  6. VITAMINS [Concomitant]
     Indication: ROUTINE HEALTH MAINTENANCE
  7. ALEVE [Concomitant]
     Indication: PAIN
  8. TYLENOL (CAPLET) [Concomitant]
     Indication: PAIN
  9. TYLENOL (CAPLET) [Concomitant]
     Indication: SLEEP DISORDER THERAPY

REACTIONS (1)
  - LABORATORY TEST ABNORMAL [None]
